FAERS Safety Report 8770210 (Version 3)
Quarter: 2015Q2

REPORT INFORMATION
  Report Type: Spontaneous
  Country: US (occurrence: US)
  Receive Date: 20120906
  Receipt Date: 20150526
  Transmission Date: 20150821
  Serious: Yes (Hospitalization, Other)
  Sender: FDA-Public Use
  Company Number: US-009507513-1209USA000769

PATIENT
  Sex: Male

DRUGS (1)
  1. PROPECIA [Suspect]
     Active Substance: FINASTERIDE
     Indication: ALOPECIA
     Dosage: 1 MG, QD
     Route: 048
     Dates: start: 1998, end: 20060514

REACTIONS (20)
  - Spinal column injury [Unknown]
  - Tinea pedis [Unknown]
  - Semen volume decreased [Unknown]
  - Erectile dysfunction [Not Recovered/Not Resolved]
  - Actinic keratosis [Unknown]
  - Cognitive disorder [Unknown]
  - Peyronie^s disease [Not Recovered/Not Resolved]
  - Back disorder [Unknown]
  - Penile pain [Not Recovered/Not Resolved]
  - Prostatitis [Unknown]
  - Sexual dysfunction [Unknown]
  - Loss of libido [Not Recovered/Not Resolved]
  - Malignant melanoma [Unknown]
  - Benign prostatic hyperplasia [Unknown]
  - Arthralgia [Unknown]
  - Lesion excision [Unknown]
  - Sinus disorder [Unknown]
  - Urinary tract infection [Unknown]
  - Basal cell carcinoma [Unknown]
  - Penile size reduced [Not Recovered/Not Resolved]

NARRATIVE: CASE EVENT DATE: 1998
